FAERS Safety Report 10173670 (Version 1)
Quarter: 2014Q2

REPORT INFORMATION
  Report Type: Spontaneous
  Country: US (occurrence: None)
  Receive Date: 20140514
  Receipt Date: 20140514
  Transmission Date: 20141212
  Serious: No
  Sender: FDA-Public Use
  Company Number: None

PATIENT
  Age: 47 Year
  Sex: Female

DRUGS (1)
  1. SIMPONI 50MG [Suspect]
     Indication: RHEUMATOID ARTHRITIS
     Dosage: 50 MG, QMN, SQ?
     Route: 058
     Dates: start: 20110622, end: 20140509

REACTIONS (2)
  - Rash [None]
  - Rash [None]
